FAERS Safety Report 25806535 (Version 1)
Quarter: 2025Q3

REPORT INFORMATION
  Report Type: Spontaneous
  Country: US (occurrence: US)
  Receive Date: 20250916
  Receipt Date: 20250916
  Transmission Date: 20251020
  Serious: Yes (Hospitalization)
  Sender: CADILA
  Company Number: US-MLMSERVICE-20250825-PI624990-00102-2

PATIENT
  Age: 83 Year
  Sex: Female

DRUGS (4)
  1. DONEPEZIL HYDROCHLORIDE [Suspect]
     Active Substance: DONEPEZIL HYDROCHLORIDE
     Indication: Memory impairment
  2. CITALOPRAM [Suspect]
     Active Substance: CITALOPRAM
     Indication: Depression
  3. TRAZODONE [Suspect]
     Active Substance: TRAZODONE HYDROCHLORIDE
     Indication: Insomnia
     Dosage: AT BEDTIME
  4. CITALOPRAM [Suspect]
     Active Substance: CITALOPRAM
     Indication: Anxiety

REACTIONS (1)
  - Delirium [Recovering/Resolving]
